FAERS Safety Report 21006502 (Version 2)
Quarter: 2022Q3

REPORT INFORMATION
  Report Type: Report from Study
  Country: GB (occurrence: GB)
  Receive Date: 20220624
  Receipt Date: 20220722
  Transmission Date: 20221027
  Serious: Yes (Death, Other)
  Sender: FDA-Public Use
  Company Number: GB-GILEAD-2022-0587079

PATIENT
  Age: 49 Year
  Sex: Female

DRUGS (1)
  1. SACITUZUMAB GOVITECAN [Suspect]
     Active Substance: SACITUZUMAB GOVITECAN
     Indication: Triple negative breast cancer
     Dosage: UNK X 2 ROUNDS
     Route: 065
     Dates: end: 20220527

REACTIONS (3)
  - Disease progression [Fatal]
  - Ascites [Not Recovered/Not Resolved]
  - General physical health deterioration [Not Recovered/Not Resolved]

NARRATIVE: CASE EVENT DATE: 20220527
